FAERS Safety Report 19299325 (Version 1)
Quarter: 2021Q2

REPORT INFORMATION
  Report Type: Report from Study
  Country: DO (occurrence: DO)
  Receive Date: 20210525
  Receipt Date: 20210525
  Transmission Date: 20210717
  Serious: Yes (Other)
  Sender: FDA-Public Use
  Company Number: NVSC2021DO108964

PATIENT
  Age: 81 Year
  Sex: Female

DRUGS (1)
  1. VYMADA [Suspect]
     Active Substance: SACUBITRIL\VALSARTAN
     Indication: PRODUCT USED FOR UNKNOWN INDICATION
     Dosage: 50 MG, HALF A TABLET EVERY 12 HOURS, 1/2 AT 8 IN THE MORNING AND 1/2 AT 8 AT NIGHT
     Route: 065

REACTIONS (3)
  - Wrong technique in product usage process [Unknown]
  - Mental disorder [Unknown]
  - Cerebrovascular accident [Unknown]
